FAERS Safety Report 20560418 (Version 6)
Quarter: 2024Q3

REPORT INFORMATION
  Report Type: Report from Study
  Country: DE (occurrence: DE)
  Receive Date: 20220307
  Receipt Date: 20240703
  Transmission Date: 20241017
  Serious: Yes (Other)
  Sender: MYLAN
  Company Number: DE-002147023-NVSC2021DE012663

PATIENT
  Sex: Female
  Weight: 65 kg

DRUGS (11)
  1. FULVESTRANT [Suspect]
     Active Substance: FULVESTRANT
     Indication: Breast cancer
     Dosage: 480 MILLIGRAM, QW, (120 MG, QW4 (120 MG EVERY 4 WEEKS))
     Route: 058
     Dates: start: 20200115
  2. LETROZOLE [Suspect]
     Active Substance: LETROZOLE
     Indication: Breast cancer metastatic
     Dosage: 2.5 MILLIGRAM, QD (IN THE MORNING)
     Route: 048
     Dates: start: 20201215, end: 20220207
  3. LETROZOLE [Suspect]
     Active Substance: LETROZOLE
     Indication: Breast cancer
  4. LETROZOLE [Suspect]
     Active Substance: LETROZOLE
     Indication: Hormone receptor positive HER2 negative breast cancer
  5. KISQALI [Suspect]
     Active Substance: RIBOCICLIB
     Indication: Breast cancer metastatic
     Dosage: 600 MG, QD (SCHEMA 21 DAYS INTAKE, 7 DAYS PAUSE)
     Route: 048
     Dates: start: 20201215, end: 20220111
  6. KISQALI [Suspect]
     Active Substance: RIBOCICLIB
     Indication: Breast cancer
  7. KISQALI [Suspect]
     Active Substance: RIBOCICLIB
     Indication: Hormone receptor positive HER2 negative breast cancer
  8. VITAMIN D [Concomitant]
     Active Substance: VITAMIN D NOS
     Indication: Product used for unknown indication
     Dosage: UNK, QD
     Route: 048
     Dates: start: 20201215
  9. CALCIUM [Concomitant]
     Active Substance: CALCIUM
     Indication: Product used for unknown indication
     Dosage: UNK, QD (SOLUBLE)
     Route: 048
     Dates: start: 20201215
  10. DENOSUMAB [Concomitant]
     Active Substance: DENOSUMAB
     Indication: Product used for unknown indication
     Dosage: 120 MILLIGRAM, Q28D
     Route: 058
     Dates: start: 20201215
  11. GOSERELIN [Concomitant]
     Active Substance: GOSERELIN
     Indication: Hormone receptor positive HER2 negative breast cancer
     Dosage: 3.6 MILLIGRAM, Q28D
     Route: 058
     Dates: start: 20201215

REACTIONS (9)
  - Liver function test increased [Not Recovered/Not Resolved]
  - Musculoskeletal discomfort [Recovered/Resolved]
  - Discomfort [Not Recovered/Not Resolved]
  - Spinal pain [Not Recovered/Not Resolved]
  - COVID-19 [Recovered/Resolved]
  - Oropharyngeal pain [Recovered/Resolved]
  - Dry eye [Not Recovered/Not Resolved]
  - Constipation [Recovered/Resolved]
  - Diarrhoea [Not Recovered/Not Resolved]

NARRATIVE: CASE EVENT DATE: 20201201
